FAERS Safety Report 5558528-7 (Version None)
Quarter: 2007Q4

REPORT INFORMATION
  Report Type: 
  Country: None (occurrence: None)
  Receive Date: 20071214
  Receipt Date: 20070831
  Transmission Date: 20080405
  Serious: No
  Sender: FDA-Public Use
  Company Number: US-ABBOTT-07P-163-0415931-00

PATIENT
  Sex: Female
  Weight: 63.56 kg

DRUGS (11)
  1. HUMIRA [Suspect]
     Indication: CROHN'S DISEASE
     Dosage: LOADING DOSE
     Route: 058
     Dates: start: 20070803
  2. HUMIRA [Suspect]
     Dates: start: 20070706, end: 20070720
  3. HUMIRA [Suspect]
     Dates: start: 20070720, end: 20070803
  4. OMEPRAZOLE [Concomitant]
     Indication: GASTROOESOPHAGEAL REFLUX DISEASE
     Route: 048
  5. MESALAMINE [Concomitant]
     Indication: CROHN'S DISEASE
     Route: 048
  6. ACETYLSALICYLIC ACID SRT [Concomitant]
     Indication: CEREBROVASCULAR ACCIDENT
     Route: 048
  7. ADVICOR [Concomitant]
     Indication: DYSLIPIDAEMIA
     Route: 048
  8. FOLIC ACID [Concomitant]
     Indication: VITAMIN SUPPLEMENTATION
     Route: 048
  9. MULTIVITAMIN WITH IRON [Concomitant]
     Indication: VITAMIN SUPPLEMENTATION
     Route: 048
  10. RISEDRONATE SODIUM [Concomitant]
     Indication: OSTEOPENIA
     Route: 048
  11. CRYSTALLINE VIT B12 INJ [Concomitant]
     Indication: VITAMIN B12 DEFICIENCY
     Route: 058

REACTIONS (2)
  - FATIGUE [None]
  - MUSCULOSKELETAL DISCOMFORT [None]
